FAERS Safety Report 4357422-7 (Version None)
Quarter: 2004Q2

REPORT INFORMATION
  Report Type: 
  Country: None (occurrence: None)
  Receive Date: 20040511
  Receipt Date: 20040511
  Transmission Date: 20050107
  Serious: Yes (Hospitalization)
  Sender: FDA-Public Use
  Company Number: None

PATIENT
  Sex: Male
  Weight: 91.6266 kg

DRUGS (8)
  1. LISINOPRIL [Suspect]
     Indication: HYPERTENSION
     Dosage: 10 MG PO ONCE
     Route: 048
     Dates: start: 20031022
  2. LISINOPRIL [Suspect]
     Indication: HYPERTENSION
     Dosage: 20 MG PO ONCE
     Route: 048
     Dates: start: 20031022
  3. ATENOLOL [Concomitant]
  4. BISACODYL [Concomitant]
  5. HYDROCHLOROTHIAZIDE [Concomitant]
  6. HYDROCODONE/ACETAMINOPHEN [Concomitant]
  7. LACTULOSE [Concomitant]
  8. OXYCODONE AND ACETAMINOPHEN [Concomitant]

REACTIONS (4)
  - EYELID OEDEMA [None]
  - LARYNGEAL OEDEMA [None]
  - PHARMACEUTICAL PRODUCT COMPLAINT [None]
  - SWELLING FACE [None]
